FAERS Safety Report 13055908 (Version 1)
Quarter: 2016Q4

REPORT INFORMATION
  Report Type: Report from Study
  Country: US (occurrence: US)
  Receive Date: 20161222
  Receipt Date: 20161222
  Transmission Date: 20170207
  Serious: Yes (Other)
  Sender: FDA-Public Use
  Company Number: US-TAKEDA-2015TUS010991

PATIENT
  Age: 32 Year
  Sex: Female

DRUGS (1)
  1. VORTIOXETINE [Suspect]
     Active Substance: VORTIOXETINE
     Indication: MAJOR DEPRESSION
     Dosage: UNK
     Route: 065

REACTIONS (3)
  - Wrist fracture [Unknown]
  - Mania [Unknown]
  - Surgery [Unknown]

NARRATIVE: CASE EVENT DATE: 201509
